FAERS Safety Report 9323979 (Version 2)
Quarter: 2013Q4

REPORT INFORMATION
  Report Type: Spontaneous
  Country: US (occurrence: US)
  Receive Date: 20130603
  Receipt Date: 20131106
  Transmission Date: 20140711
  Serious: Yes (Hospitalization, Other)
  Sender: FDA-Public Use
  Company Number: US-009507513-1305USA018028

PATIENT
  Sex: Female
  Weight: 80.27 kg

DRUGS (1)
  1. NUVARING [Suspect]
     Indication: HAEMORRHAGE
     Dosage: UNK
     Route: 067
     Dates: start: 20100127, end: 20110617

REACTIONS (6)
  - Pulmonary embolism [Unknown]
  - Deep vein thrombosis [Unknown]
  - Off label use [Unknown]
  - Uterine leiomyoma [Unknown]
  - Autoimmune thyroiditis [Unknown]
  - Thyroid disorder [Unknown]
